FAERS Safety Report 24642006 (Version 1)
Quarter: 2024Q4

REPORT INFORMATION
  Report Type: Report from Study
  Country: JP (occurrence: JP)
  Receive Date: 20241120
  Receipt Date: 20241120
  Transmission Date: 20250115
  Serious: Yes (Death, Hospitalization, Other)
  Sender: INSMED
  Company Number: JP-INSMED-2024-03217-JPAA

PATIENT
  Age: 75 Year
  Sex: Female

DRUGS (1)
  1. ARIKAYCE [Suspect]
     Active Substance: AMIKACIN
     Indication: Mycobacterium avium complex infection
     Dosage: UNK, UNK
     Route: 055
     Dates: start: 20240802, end: 2024

REACTIONS (7)
  - Death [Fatal]
  - Cardiac failure [Unknown]
  - Physical deconditioning [Unknown]
  - Aphonia [Not Recovered/Not Resolved]
  - Accidental underdose [Unknown]
  - Product preparation error [Unknown]
  - Therapy interrupted [Unknown]

NARRATIVE: CASE EVENT DATE: 20240101
